FAERS Safety Report 8006360-7 (Version None)
Quarter: 2011Q4

REPORT INFORMATION
  Report Type: 
  Country: None (occurrence: None)
  Receive Date: 20111226
  Receipt Date: 20111101
  Transmission Date: 20120403
  Serious: Yes (Death, Other)
  Sender: FDA-Public Use
  Company Number: US-PURDUE-USA-2011-0079903

PATIENT
  Sex: Male

DRUGS (2)
  1. OXYCONTIN [Suspect]
     Indication: OSTEOARTHRITIS
  2. OXYCONTIN [Suspect]
     Indication: ARTHRITIS

REACTIONS (2)
  - DRUG DEPENDENCE [None]
  - DEATH [None]
